FAERS Safety Report 9537804 (Version 1)
Quarter: 2013Q3

REPORT INFORMATION
  Report Type: Spontaneous
  Country: BR (occurrence: BR)
  Receive Date: 20130919
  Receipt Date: 20130919
  Transmission Date: 20140515
  Serious: Yes (Other)
  Sender: FDA-Public Use
  Company Number: BR-COVIDIEN/TYCO HEALTHCARE/MALLINCKRODT-T201304387

PATIENT
  Age: 46 Year
  Sex: Female

DRUGS (3)
  1. EXALGO EXTENDED RELEASE [Suspect]
     Indication: PRODUCT USED FOR UNKNOWN INDICATION
     Dosage: 8 MG, UNK
     Route: 048
     Dates: end: 2013
  2. CYMBALTA [Concomitant]
     Dosage: UNK
  3. LYRICA [Concomitant]
     Dosage: UNK

REACTIONS (9)
  - Polyp [Recovered/Resolved]
  - Helicobacter infection [Unknown]
  - Abdominal distension [Unknown]
  - Haemorrhoids [Unknown]
  - Asthenia [Unknown]
  - Vomiting [Unknown]
  - Constipation [Unknown]
  - Decreased appetite [Unknown]
  - Abdominal discomfort [Unknown]
